FAERS Safety Report 8800157 (Version 1)
Quarter: 2012Q4

REPORT INFORMATION
  Report Type: Report from Study
  Country: HU (occurrence: HU)
  Receive Date: 20120921
  Receipt Date: 20120921
  Transmission Date: 20130627
  Serious: Yes (Death, Hospitalization, Other)
  Sender: FDA-Public Use
  Company Number: HU-ROCHE-1126000

PATIENT
  Sex: Male

DRUGS (1)
  1. XELODA [Suspect]
     Indication: GASTRIC CANCER
     Route: 048
     Dates: start: 200901, end: 200907

REACTIONS (6)
  - Computerised tomogram abnormal [Unknown]
  - Oedema [Unknown]
  - Vomiting [Unknown]
  - Asthenia [Unknown]
  - Jaundice [Unknown]
  - Death [Fatal]
